FAERS Safety Report 12663616 (Version 1)
Quarter: 2016Q3

REPORT INFORMATION
  Report Type: Spontaneous
  Country: US (occurrence: US)
  Receive Date: 20160818
  Receipt Date: 20160818
  Transmission Date: 20161109
  Serious: No
  Sender: FDA-Public Use
  Company Number: US-ACADIA PHARMACEUTICALS INC.-ACA-2016-000128

PATIENT
  Age: 73 Year
  Sex: Male

DRUGS (1)
  1. NUPLAZID [Suspect]
     Active Substance: PIMAVANSERIN TARTRATE
     Indication: PARKINSON^S DISEASE
     Dosage: 34 MG, QD
     Route: 048
     Dates: start: 20160616, end: 2016

REACTIONS (6)
  - Sleep disorder [Unknown]
  - Dysphonia [Unknown]
  - Feeling abnormal [Unknown]
  - Irritability [Unknown]
  - Adverse drug reaction [Unknown]
  - Visual impairment [Unknown]

NARRATIVE: CASE EVENT DATE: 201606
